FAERS Safety Report 10127576 (Version 1)
Quarter: 2014Q2

REPORT INFORMATION
  Report Type: Spontaneous
  Country: DK (occurrence: DK)
  Receive Date: 20140428
  Receipt Date: 20140428
  Transmission Date: 20141212
  Serious: Yes (Hospitalization)
  Sender: FDA-Public Use
  Company Number: DK-MYLANLABS-2014S1008771

PATIENT
  Age: 52 Year
  Sex: Male

DRUGS (2)
  1. NITROGLYCERIN [Suspect]
     Indication: ANGINA PECTORIS
     Route: 060
  2. NITROGLYCERIN [Suspect]
     Indication: ANGINA PECTORIS
     Route: 042

REACTIONS (1)
  - Acute myocardial infarction [Unknown]
